FAERS Safety Report 11744127 (Version 2)
Quarter: 2015Q4

REPORT INFORMATION
  Report Type: Spontaneous
  Country: CH (occurrence: CH)
  Receive Date: 20151116
  Receipt Date: 20151119
  Transmission Date: 20160304
  Serious: Yes (Death, Life-Threatening)
  Sender: FDA-Public Use
  Company Number: CH-ASTRAZENECA-2015SF10570

PATIENT
  Age: 34926 Day
  Sex: Female
  Weight: 63 kg

DRUGS (28)
  1. NEURONTIN [Suspect]
     Active Substance: GABAPENTIN
     Indication: PAIN
     Route: 048
     Dates: end: 20151028
  2. PANTOZOL [Suspect]
     Active Substance: PANTOPRAZOLE SODIUM
     Route: 048
  3. ZALDIAR [Suspect]
     Active Substance: ACETAMINOPHEN\TRAMADOL HYDROCHLORIDE
     Indication: PAIN
     Route: 048
  4. METO ZEROK [Concomitant]
     Active Substance: METOPROLOL SUCCINATE
     Route: 048
  5. EUTHYROX [Concomitant]
     Active Substance: LEVOTHYROXINE SODIUM
     Route: 048
  6. LAXOBERON [Concomitant]
     Active Substance: SODIUM PICOSULFATE
     Dosage: MAXIMUM 10 DROPS PER DAY IF CONSTIPATION
     Route: 048
  7. REMERON [Suspect]
     Active Substance: MIRTAZAPINE
     Indication: INSOMNIA
     Dosage: MAXIMUM 0.5/DAY
     Route: 065
  8. NOVALGIN [Suspect]
     Active Substance: METAMIZOLE SODIUM
     Indication: PAIN
     Route: 048
     Dates: start: 20151014, end: 20151028
  9. MARCOUMAR [Concomitant]
     Active Substance: PHENPROCOUMON
     Dosage: 3 MG AS PRESCRIBED
     Route: 048
  10. VI-DE 3 [Concomitant]
     Active Substance: CHOLECALCIFEROL
  11. NITRODERM [Concomitant]
     Active Substance: NITROGLYCERIN
     Dosage: MAXIMUM 1 PATCH PER DAY IF SYSTOLIC BLOOD PRESSURE}150 MMHG
     Route: 062
  12. ASPIRIN CARDIO [Suspect]
     Active Substance: ASPIRIN
     Indication: INFARCTION
     Route: 048
  13. DIGOXIN. [Suspect]
     Active Substance: DIGOXIN
     Indication: CARDIAC FAILURE
     Dosage: 0.25 MG, EVERY OTHER DAY, SANDOZ
     Route: 048
  14. TOREM [Concomitant]
     Active Substance: TORSEMIDE
     Dosage: 1 DF IN THE MORNING, 0.5 DF AFTERNOON
     Route: 048
  15. KYTTA SALBE [Concomitant]
     Route: 061
  16. PRIMOFENAC [Concomitant]
     Route: 061
  17. VALVERDE SCHLAF [Concomitant]
     Route: 048
  18. TRAMADOL. [Concomitant]
     Active Substance: TRAMADOL
     Dosage: MAXIMUM 4X15 DROPS PER DAY IF PAIN
     Route: 048
  19. MOVICOL [Concomitant]
     Active Substance: POLYETHYLENE GLYCOL 3350\POTASSIUM CHLORIDE\SODIUM BICARBONATE\SODIUM CHLORIDE
     Dosage: MAXIMUM 1 SACHET PER DAY IF CONSTIPATION
     Route: 048
  20. AUGMENTIN [Suspect]
     Active Substance: AMOXICILLIN\CLAVULANATE POTASSIUM
     Indication: CHOLECYSTITIS
     Route: 048
     Dates: start: 20151025
  21. DIGOXIN. [Suspect]
     Active Substance: DIGOXIN
     Indication: CARDIAC FAILURE
     Dosage: 0.25 MG, EVERY OTHER DAY, SANDOZ
     Route: 048
  22. PRIMPERAN [Suspect]
     Active Substance: METOCLOPRAMIDE HYDROCHLORIDE
     Indication: NAUSEA
     Route: 048
  23. ATACAND [Suspect]
     Active Substance: CANDESARTAN CILEXETIL
     Indication: CARDIAC FAILURE
     Route: 048
  24. ASPIRIN CARDIO [Suspect]
     Active Substance: ASPIRIN
     Indication: PROPHYLAXIS
     Route: 048
  25. FEIGENSIRUP [Concomitant]
     Indication: CONSTIPATION
     Route: 048
  26. ATACAND [Suspect]
     Active Substance: CANDESARTAN CILEXETIL
     Indication: CARDIAC FAILURE
     Route: 048
  27. SEROQUEL [Suspect]
     Active Substance: QUETIAPINE FUMARATE
     Indication: RESTLESSNESS
     Route: 048
     Dates: end: 20151028
  28. PARACETAMOL [Suspect]
     Active Substance: ACETAMINOPHEN
     Indication: PAIN
     Route: 048

REACTIONS (9)
  - Pulmonary sepsis [Fatal]
  - Nausea [Unknown]
  - Constipation [Unknown]
  - Pneumonia [Fatal]
  - Agranulocytosis [Fatal]
  - Coma [Unknown]
  - Abdominal pain upper [Unknown]
  - Spinal osteoarthritis [Unknown]
  - Decreased appetite [Unknown]

NARRATIVE: CASE EVENT DATE: 20151025
